FAERS Safety Report 14733138 (Version 1)
Quarter: 2018Q2

REPORT INFORMATION
  Report Type: Spontaneous
  Country: SE (occurrence: SE)
  Receive Date: 20180409
  Receipt Date: 20180409
  Transmission Date: 20180711
  Serious: Yes (Hospitalization)
  Sender: FDA-Public Use
  Company Number: SE-CIPLA LTD.-2018SE14307

PATIENT

DRUGS (3)
  1. EPIRUBICIN [Suspect]
     Active Substance: EPIRUBICIN
     Indication: BREAST CANCER
     Dosage: UNK
     Route: 065
     Dates: start: 20171219
  2. ACCOFIL [Suspect]
     Active Substance: FILGRASTIM
     Indication: NEUTROPHIL COUNT
     Dosage: UNK
     Route: 065
     Dates: start: 20171222, end: 20171222
  3. ACCOFIL [Suspect]
     Active Substance: FILGRASTIM
     Dosage: UNK
     Route: 065
     Dates: start: 20171227, end: 20171227

REACTIONS (3)
  - Back pain [Recovering/Resolving]
  - Febrile neutropenia [Recovered/Resolved]
  - Bone pain [Recovering/Resolving]

NARRATIVE: CASE EVENT DATE: 20171227
